FAERS Safety Report 8105428-4 (Version None)
Quarter: 2012Q1

REPORT INFORMATION
  Report Type: 
  Country: None (occurrence: None)
  Receive Date: 20120201
  Receipt Date: 20120126
  Transmission Date: 20120608
  Serious: Yes (Hospitalization)
  Sender: FDA-Public Use
  Company Number: CA-ABBOTT-12P-028-0889061-00

PATIENT
  Sex: Male
  Weight: 66.4 kg

DRUGS (2)
  1. HUMIRA [Suspect]
     Indication: CROHN'S DISEASE
     Dosage: ONCE
     Route: 058
     Dates: start: 20111221, end: 20111221
  2. HUMIRA [Suspect]
     Route: 058
     Dates: start: 20120106

REACTIONS (6)
  - DIARRHOEA [None]
  - MUSCLE STRAIN [None]
  - INFLUENZA LIKE ILLNESS [None]
  - THROMBOSIS [None]
  - DEVICE RELATED INFECTION [None]
  - PYREXIA [None]
